FAERS Safety Report 7874359-7 (Version None)
Quarter: 2011Q4

REPORT INFORMATION
  Report Type: 
  Country: None (occurrence: None)
  Receive Date: 20111030
  Receipt Date: 20110518
  Transmission Date: 20120403
  Serious: No
  Sender: FDA-Public Use
  Company Number: US-AMGEN-USASP2011025796

PATIENT
  Age: 52 Year
  Sex: Male

DRUGS (2)
  1. ENBREL [Suspect]
     Indication: RHEUMATOID ARTHRITIS
     Dosage: 50 MG, QWK
     Dates: start: 20070101, end: 20110501
  2. HUMIRA [Concomitant]

REACTIONS (7)
  - RESPIRATORY TRACT CONGESTION [None]
  - PAIN IN EXTREMITY [None]
  - JOINT SWELLING [None]
  - MUSCULOSKELETAL STIFFNESS [None]
  - INJECTION SITE PAIN [None]
  - ARTHRALGIA [None]
  - NASOPHARYNGITIS [None]
